FAERS Safety Report 11993525 (Version 2)
Quarter: 2016Q2

REPORT INFORMATION
  Report Type: Spontaneous
  Country: DK (occurrence: DK)
  Receive Date: 20160203
  Receipt Date: 20160628
  Transmission Date: 20160815
  Serious: Yes (Life-Threatening)
  Sender: FDA-Public Use
  Company Number: DK-CONCORDIA PHARMACEUTICALS INC.-CO-PL-DK-2016-032

PATIENT
  Age: 42 Year
  Sex: Female

DRUGS (5)
  1. METHOTREXATE (METHOTREXATE SODIUM) [Concomitant]
     Active Substance: METHOTREXATE SODIUM
     Dates: start: 20111219
  2. HUMIRA [Suspect]
     Active Substance: ADALIMUMAB
     Indication: RHEUMATOID ARTHRITIS
     Route: 058
     Dates: start: 20130812, end: 201510
  3. PLAQUENIL [Suspect]
     Active Substance: HYDROXYCHLOROQUINE SULFATE
     Indication: RHEUMATOID ARTHRITIS
     Route: 048
     Dates: start: 20120111, end: 20121004
  4. ERCOQUIN [Suspect]
     Active Substance: HYDROXYCHLOROQUINE SULFATE
     Indication: RHEUMATOID ARTHRITIS
     Route: 048
     Dates: start: 20120111, end: 20121004
  5. SALAZOPYRIN [Suspect]
     Active Substance: SULFASALAZINE
     Indication: RHEUMATOID ARTHRITIS
     Route: 048
     Dates: start: 20120413, end: 20121004

REACTIONS (7)
  - Dyspnoea [Unknown]
  - Dilatation ventricular [Unknown]
  - Ejection fraction decreased [Unknown]
  - Left ventricular failure [Not Recovered/Not Resolved]
  - Cardiac hypertrophy [Unknown]
  - Systolic dysfunction [Unknown]
  - Ventricular hyperkinesia [Unknown]

NARRATIVE: CASE EVENT DATE: 2015
